FAERS Safety Report 22081548 (Version 1)
Quarter: 2023Q1

REPORT INFORMATION
  Report Type: Spontaneous
  Country: JP (occurrence: JP)
  Receive Date: 20230310
  Receipt Date: 20230310
  Transmission Date: 20230418
  Serious: Yes (Other)
  Sender: FDA-Public Use
  Company Number: JP-SA-2023SA063868

PATIENT
  Age: 76 Year
  Sex: Male
  Weight: 58 kg

DRUGS (8)
  1. CABLIVI [Suspect]
     Active Substance: CAPLACIZUMAB-YHDP
     Indication: Product used for unknown indication
     Dosage: A DOSE OF 10 MG BEFORE AND AFTER PLASMA EXCHANGE ON THE FIRST DAY
     Route: 065
     Dates: start: 20230215, end: 20230215
  2. CABLIVI [Suspect]
     Active Substance: CAPLACIZUMAB-YHDP
     Indication: Product used for unknown indication
     Dosage: A DOSE OF 10 MG BEFORE AND AFTER PLASMA EXCHANGE ON THE FIRST DAY
     Route: 065
     Dates: start: 20230215, end: 20230215
  3. CABLIVI [Suspect]
     Active Substance: CAPLACIZUMAB-YHDP
     Indication: Product used for unknown indication
     Dosage: A DOSE OF 10 MG BEFORE AND AFTER PLASMA EXCHANGE ON THE FIRST DAY
     Route: 065
     Dates: start: 20230215, end: 20230215
  4. CABLIVI [Suspect]
     Active Substance: CAPLACIZUMAB-YHDP
     Indication: Product used for unknown indication
     Dosage: A DOSE OF 10 MG BEFORE AND AFTER PLASMA EXCHANGE ON THE FIRST DAY
     Route: 065
     Dates: start: 20230215, end: 20230215
  5. CABLIVI [Suspect]
     Active Substance: CAPLACIZUMAB-YHDP
     Dosage: 10 MG AFTER PLASMA EXCHANGE
     Route: 065
     Dates: start: 20230216, end: 20230216
  6. CABLIVI [Suspect]
     Active Substance: CAPLACIZUMAB-YHDP
     Dosage: 10 MG AFTER PLASMA EXCHANGE
     Route: 065
     Dates: start: 20230216, end: 20230216
  7. CABLIVI [Suspect]
     Active Substance: CAPLACIZUMAB-YHDP
     Dosage: 10 MG AFTER PLASMA EXCHANGE
     Route: 065
     Dates: start: 20230216, end: 20230216
  8. CABLIVI [Suspect]
     Active Substance: CAPLACIZUMAB-YHDP
     Dosage: 10 MG AFTER PLASMA EXCHANGE
     Route: 065
     Dates: start: 20230216, end: 20230216

REACTIONS (2)
  - Colon cancer [Unknown]
  - Tumour haemorrhage [Recovered/Resolved]

NARRATIVE: CASE EVENT DATE: 20230217
